FAERS Safety Report 19650929 (Version 2)
Quarter: 2023Q1

REPORT INFORMATION
  Report Type: Report from Study
  Country: US (occurrence: US)
  Receive Date: 20210802
  Receipt Date: 20230104
  Transmission Date: 20230418
  Serious: No
  Sender: FDA-Public Use
  Company Number: US-AMGEN-USASP2021116996

PATIENT
  Age: 61 Year
  Sex: Female

DRUGS (2)
  1. OTEZLA [Suspect]
     Active Substance: APREMILAST
     Indication: Granuloma annulare
     Dosage: 30 MILLIGRAM, BID
     Route: 048
     Dates: start: 202106
  2. OTEZLA [Suspect]
     Active Substance: APREMILAST
     Indication: Off label use

REACTIONS (1)
  - Off label use [Unknown]

NARRATIVE: CASE EVENT DATE: 20210601
